FAERS Safety Report 9143849 (Version 1)
Quarter: 2013Q1

REPORT INFORMATION
  Report Type: Spontaneous
  Country: IT (occurrence: IT)
  Receive Date: 20130306
  Receipt Date: 20130306
  Transmission Date: 20140127
  Serious: Yes (Disabling)
  Sender: FDA-Public Use
  Company Number: PHHY2013IT020758

PATIENT
  Age: 70 Year
  Sex: Female

DRUGS (1)
  1. CARVEDILOL [Suspect]
     Dosage: 1 DF, QD
     Route: 048
     Dates: start: 20070101, end: 20121212

REACTIONS (3)
  - Rhinitis atrophic [Not Recovered/Not Resolved]
  - Vitreous detachment [Not Recovered/Not Resolved]
  - Lacrimation decreased [Not Recovered/Not Resolved]
